FAERS Safety Report 24532536 (Version 2)
Quarter: 2024Q4

REPORT INFORMATION
  Report Type: Report from Study
  Country: CA (occurrence: None)
  Receive Date: 20241022
  Receipt Date: 20241127
  Transmission Date: 20250114
  Serious: Yes (Death, Hospitalization)
  Sender: ORION
  Company Number: CA-PFIZER INC-202400279504

PATIENT
  Age: 68 Year
  Sex: Female

DRUGS (2)
  1. METHOTREXATE [Suspect]
     Active Substance: METHOTREXATE
     Indication: Product used for unknown indication
  2. SIMLANDI [Suspect]
     Active Substance: ADALIMUMAB-RYVK
     Indication: Rheumatoid arthritis

REACTIONS (5)
  - Infection [Fatal]
  - Skin atrophy [Fatal]
  - Spinal operation [Fatal]
  - Wound [Fatal]
  - Death [Fatal]
